FAERS Safety Report 8798519 (Version 1)
Quarter: 2012Q4

REPORT INFORMATION
  Report Type: Spontaneous
  Country: US (occurrence: None)
  Receive Date: 20120917
  Receipt Date: 20120917
  Transmission Date: 20130627
  Serious: No
  Sender: FDA-Public Use
  Company Number: None

PATIENT
  Age: 41 Year
  Sex: Female
  Weight: 122.47 kg

DRUGS (1)
  1. CYMBALTA 30 MG LILLY [Suspect]
     Indication: DEPRESSION
     Dosage: 30 mg 2 x per day po
     Route: 048

REACTIONS (9)
  - Withdrawal syndrome [None]
  - Tremor [None]
  - Neuralgia [None]
  - Nausea [None]
  - Diarrhoea [None]
  - Fatigue [None]
  - Headache [None]
  - Pruritus [None]
  - Anxiety [None]
